FAERS Safety Report 5809844-2 (Version None)
Quarter: 2008Q3

REPORT INFORMATION
  Report Type: 
  Country: None (occurrence: None)
  Receive Date: 20080715
  Receipt Date: 20080705
  Transmission Date: 20090109
  Serious: Yes (Hospitalization)
  Sender: FDA-Public Use
  Company Number: SE-ABBOTT-08P-150-0461306-00

PATIENT
  Age: 42 Year
  Sex: Male

DRUGS (1)
  1. ZEMPLAR [Suspect]
     Indication: HYPERPARATHYROIDISM
     Dosage: 15MCQ WEEKLY
     Route: 050
     Dates: start: 20080303

REACTIONS (1)
  - NEPHRECTOMY [None]
